FAERS Safety Report 5205469-0 (Version None)
Quarter: 2006Q4

REPORT INFORMATION
  Report Type: 
  Country: None (occurrence: None)
  Receive Date: 20061027
  Receipt Date: 20051024
  Transmission Date: 20070319
  Serious: Yes (Hospitalization, Other)
  Sender: FDA-Public Use
  Company Number: HQWYE096826OCT04

PATIENT
  Age: 64 Year
  Sex: Female
  Weight: 70.82 kg

DRUGS (4)
  1. PREMARIN [Suspect]
     Indication: HORMONE REPLACEMENT THERAPY
     Dosage: 0.625MG DAILY, ORAL
     Route: 048
     Dates: start: 19680101, end: 19991024
  2. CYCRIN [Suspect]
  3. METFORMIN HCL [Concomitant]
  4. GLIPIZIDE [Concomitant]

REACTIONS (1)
  - OVARIAN CANCER [None]
